FAERS Safety Report 7474555-7 (Version None)
Quarter: 2011Q1

REPORT INFORMATION
  Report Type: 
  Country: None (occurrence: None)
  Receive Date: 20110302
  Receipt Date: 20100812
  Transmission Date: 20110831
  Serious: Yes (Death, Hospitalization, Other)
  Sender: FDA-Public Use
  Company Number: 163-21880-10071209

PATIENT
  Age: 56 Year
  Sex: Male

DRUGS (7)
  1. DEXAMETHASONE [Concomitant]
  2. BLOOD (BLOOD AND RELATED PRODUCTS) [Concomitant]
  3. REVLIMID [Suspect]
     Indication: MULTIPLE MYELOMA
     Dosage: 25 MG, QD DAYS 1-21 Q28D, PO
     Route: 048
     Dates: start: 20100703, end: 20100706
  4. ALLOPURINOL [Concomitant]
  5. NEXIUM [Concomitant]
  6. NORVASC [Concomitant]
  7. ERYTHROPOIETIN (EPOETIN ALFA) [Concomitant]

REACTIONS (4)
  - DISEASE PROGRESSION [None]
  - MYOCARDIAL INFARCTION [None]
  - HEPATIC ENZYME INCREASED [None]
  - CATHETER SITE HAEMORRHAGE [None]
